FAERS Safety Report 8553522-6 (Version None)
Quarter: 2012Q3

REPORT INFORMATION
  Report Type: 
  Country: None (occurrence: None)
  Receive Date: 20120731
  Receipt Date: 20100828
  Transmission Date: 20120928
  Serious: Yes (Hospitalization)
  Sender: FDA-Public Use
  Company Number: GB-AMGEN-KDC435002

PATIENT
  Age: 51 Year
  Sex: Male

DRUGS (18)
  1. PANTOPRAZOLE [Concomitant]
     Dosage: 40 MG, QD
     Route: 048
     Dates: start: 20100322
  2. IMODIUM [Concomitant]
     Dosage: UNK UNK, PRN
     Dates: start: 20100401
  3. CAPECITABINE [Suspect]
     Dosage: 1 G, BID
     Dates: start: 20100317
  4. TPN [Concomitant]
     Dosage: UNK UNK, PRN
     Dates: start: 20100401
  5. CYCLIZINE [Concomitant]
     Dosage: 50 MG, PRN
     Route: 048
     Dates: start: 20100401
  6. OXALIPLATIN [Suspect]
     Dosage: UNK UNK, UNK
     Dates: start: 20100317
  7. MAGNESIUM ASPARTATE [Concomitant]
     Dosage: UNK UNK, UNK
     Dates: start: 20100427
  8. EMOLLIENTS AND PROTECTIVES [Concomitant]
  9. EPIRUBICIN [Suspect]
     Dosage: UNK UNK, UNK
     Dates: start: 20100317
  10. CHLORPROMAZINE HCL [Concomitant]
     Dosage: 25 MG, PRN
     Route: 048
     Dates: start: 20100401
  11. ENSURE [Concomitant]
     Dosage: UNK UNK, PRN
     Dates: start: 20100301
  12. BUPRENORPHINE [Concomitant]
     Dosage: UNK UNK, UNK
     Dates: start: 20100401
  13. COLOXYL WITH DANTHRON [Concomitant]
     Dosage: UNK UNK, PRN
     Dates: start: 20100301
  14. ONDANSETRON [Concomitant]
     Dosage: UNK UNK, UNK
     Dates: start: 20100317
  15. GAVISCON [Concomitant]
     Dosage: 10 ML, PRN
     Dates: start: 20100427
  16. PANITUMUMAB [Suspect]
     Indication: GASTROOESOPHAGEAL CANCER
     Dosage: UNK UNK, UNK
     Dates: start: 20100317
  17. DEXAMETHASONE [Concomitant]
     Dosage: 2 MG, TID
     Route: 048
     Dates: start: 20100317
  18. DOXYCYCLINE HCL [Concomitant]
     Dosage: 100 MG, QD
     Route: 048
     Dates: start: 20100407

REACTIONS (3)
  - VOMITING [None]
  - INFECTION [None]
  - NAUSEA [None]
